FAERS Safety Report 23504383 (Version 1)
Quarter: 2024Q1

REPORT INFORMATION
  Report Type: Spontaneous
  Country: US (occurrence: US)
  Receive Date: 20240209
  Receipt Date: 20240209
  Transmission Date: 20240410
  Serious: No
  Sender: FDA-Public Use
  Company Number: US-IGSA-BIG0021686

PATIENT
  Sex: Female
  Weight: 104.7 kg

DRUGS (33)
  1. PROLASTIN-C LIQUID [Suspect]
     Active Substance: .ALPHA.1-PROTEINASE INHIBITOR HUMAN
     Indication: Alpha-1 antitrypsin deficiency
     Dosage: 6282 MILLIGRAM, Q.WK.
     Route: 042
     Dates: start: 20180830
  2. ERGOCALCIFEROL [Concomitant]
     Active Substance: ERGOCALCIFEROL
  3. PROCARDIA [Concomitant]
     Active Substance: NIFEDIPINE
  4. LASIX [Concomitant]
     Active Substance: FUROSEMIDE
  5. NEXIUM I.V. [Concomitant]
     Active Substance: ESOMEPRAZOLE SODIUM
  6. PROAIR HFA [Concomitant]
     Active Substance: ALBUTEROL SULFATE
  7. VITAMINS [Concomitant]
     Active Substance: VITAMINS
  8. VITAMIN D3 [Concomitant]
     Active Substance: CHOLECALCIFEROL
  9. HUMALOG KWIKPEN [Concomitant]
     Active Substance: INSULIN LISPRO
  10. LEVEMIR [Concomitant]
     Active Substance: INSULIN DETEMIR
  11. PROCHLORPERAZINE MALEATE [Concomitant]
     Active Substance: PROCHLORPERAZINE MALEATE
  12. VICTOZA [Concomitant]
     Active Substance: LIRAGLUTIDE
  13. XARELTO [Concomitant]
     Active Substance: RIVAROXABAN
  14. COENZYME Q10 [Concomitant]
     Active Substance: DIETARY SUPPLEMENT\UBIDECARENONE
  15. CYANOCOBALAMIN [Concomitant]
     Active Substance: CYANOCOBALAMIN
  16. ESTRACE [Concomitant]
     Active Substance: ESTRADIOL
  17. FASENRA [Concomitant]
     Active Substance: BENRALIZUMAB
  18. FERROUS GLUCONATE [Concomitant]
     Active Substance: FERROUS GLUCONATE
  19. METOPROLOL SUCCINATE [Concomitant]
     Active Substance: METOPROLOL SUCCINATE
  20. DOCUSATE SODIUM\SENNOSIDE A\SENNOSIDE B [Concomitant]
     Active Substance: DOCUSATE SODIUM\SENNOSIDE A\SENNOSIDE B
  21. TRELEGY ELLIPTA [Concomitant]
     Active Substance: FLUTICASONE FUROATE\UMECLIDINIUM BROMIDE\VILANTEROL TRIFENATATE
  22. PROVENTIL HFA [SALBUTAMOL] [Concomitant]
  23. ESCITALOPRAM OXALATE [Concomitant]
     Active Substance: ESCITALOPRAM OXALATE
  24. METFORMIN HYDROCHLORIDE [Concomitant]
     Active Substance: METFORMIN HYDROCHLORIDE
  25. TOPIRAMATE [Concomitant]
     Active Substance: TOPIRAMATE
  26. MAGNESIUM OXIDE [Concomitant]
     Active Substance: MAGNESIUM OXIDE
  27. LOSARTAN POTASSIUM [Concomitant]
     Active Substance: LOSARTAN POTASSIUM
  28. MOVE FREE JOINT HEALTH [Concomitant]
  29. NEURIVA BRAIN PERFORMANCE PLUS [Concomitant]
  30. TART CHERRY [Concomitant]
  31. VITAMIN C [Concomitant]
     Active Substance: ASCORBIC ACID
  32. PREDNISONE [Concomitant]
     Active Substance: PREDNISONE
  33. MORPHINE SULFATE [Concomitant]
     Active Substance: MORPHINE SULFATE

REACTIONS (2)
  - Malaise [Unknown]
  - Intentional dose omission [Unknown]
